FAERS Safety Report 7059919-8 (Version None)
Quarter: 2010Q4

REPORT INFORMATION
  Report Type: 
  Country: None (occurrence: None)
  Receive Date: 20101025
  Receipt Date: 20101018
  Transmission Date: 20110411
  Serious: Yes (Other)
  Sender: FDA-Public Use
  Company Number: GB-JNJCH-2010023583

PATIENT
  Sex: Female

DRUGS (1)
  1. ROGAINE [Suspect]
     Indication: ALOPECIA
     Dosage: TEXT:QUARTER CAPFUL ONCE DAILY
     Route: 061

REACTIONS (3)
  - PRODUCT COUNTERFEIT [None]
  - UNDERDOSE [None]
  - WRONG DRUG ADMINISTERED [None]
